FAERS Safety Report 21269625 (Version 5)
Quarter: 2022Q4

REPORT INFORMATION
  Report Type: Spontaneous
  Country: IT (occurrence: IT)
  Receive Date: 20220830
  Receipt Date: 20221011
  Transmission Date: 20230113
  Serious: Yes (Hospitalization)
  Sender: FDA-Public Use
  Company Number: None

PATIENT
  Age: 22 Year
  Sex: Female

DRUGS (4)
  1. METFORMIN HYDROCHLORIDE [Suspect]
     Active Substance: METFORMIN HYDROCHLORIDE
     Indication: Diabetes mellitus
     Dosage: UNK (OVERDOSE - INGESTIONE ACUTA DI METFORMINA (QUANTITATIVO NON NOTO)IL TRATTAMENTO HA PREVISTO LA
     Route: 048
     Dates: start: 20220731, end: 20220731
  2. SELEGILINE [Concomitant]
     Active Substance: SELEGILINE
     Indication: Product used for unknown indication
     Dosage: UNK(NON NOTO - FARMACI DELLA NONNA, GRANDMAS DRUG)
     Route: 048
  3. TRAMADOL [Concomitant]
     Active Substance: TRAMADOL
     Indication: Product used for unknown indication
     Dosage: UNK (NON NOTO - FARMACI DELLA NONNA, GRANDMAS DRUG)
     Route: 048
  4. TRAMADOL [Concomitant]
     Active Substance: TRAMADOL
     Dosage: UNKNOWN - GRANDMA^S DRUGS
     Route: 065

REACTIONS (6)
  - Bradypnoea [Recovering/Resolving]
  - Metabolic acidosis [Recovered/Resolved]
  - Toxicity to various agents [Recovering/Resolving]
  - Hypotension [Recovering/Resolving]
  - Respiratory failure [Recovering/Resolving]
  - Overdose [Recovering/Resolving]

NARRATIVE: CASE EVENT DATE: 20220731
